FAERS Safety Report 16285544 (Version 1)
Quarter: 2019Q2

REPORT INFORMATION
  Report Type: Spontaneous
  Country: FR (occurrence: FR)
  Receive Date: 20190508
  Receipt Date: 20190508
  Transmission Date: 20190711
  Serious: Yes (Other)
  Sender: FDA-Public Use
  Company Number: FR-JNJFOC-20190446056

PATIENT
  Sex: Female

DRUGS (3)
  1. DEPAKINE CHRONO [Suspect]
     Active Substance: VALPROATE SODIUM
     Indication: EPILEPSY
     Route: 065
     Dates: start: 20020103, end: 20021002
  2. TOPIRAMATE. [Suspect]
     Active Substance: TOPIRAMATE
     Indication: EPILEPSY
     Route: 048
     Dates: start: 20020103, end: 20021002
  3. SPECIAFOLDINE [Concomitant]
     Active Substance: FOLIC ACID
     Route: 065

REACTIONS (2)
  - Exposure during pregnancy [Unknown]
  - Amniotic fluid volume decreased [Unknown]
